FAERS Safety Report 7233708-3 (Version None)
Quarter: 2011Q1

REPORT INFORMATION
  Report Type: 
  Country: None (occurrence: None)
  Receive Date: 20110119
  Receipt Date: 20100405
  Transmission Date: 20110831
  Serious: No
  Sender: FDA-Public Use
  Company Number: US-TEVA-230905USA

PATIENT
  Sex: Male
  Weight: 97.837 kg

DRUGS (2)
  1. RANITIDINE HYDROCHLORIDE [Concomitant]
     Dosage: TAKE 1 TABLET AT BEDTIME
     Route: 048
  2. COPAXONE [Suspect]
     Indication: MULTIPLE SCLEROSIS
     Route: 058
     Dates: start: 20091021

REACTIONS (1)
  - IMMEDIATE POST-INJECTION REACTION [None]
